FAERS Safety Report 5031298-7 (Version None)
Quarter: 2006Q2

REPORT INFORMATION
  Report Type: 
  Country: None (occurrence: None)
  Receive Date: 20060621
  Receipt Date: 20040727
  Transmission Date: 20061013
  Serious: Yes (Life-Threatening)
  Sender: FDA-Public Use
  Company Number: 2004AP03879

PATIENT
  Age: 23833 Day
  Sex: Male

DRUGS (9)
  1. IRESSA [Suspect]
     Indication: LUNG SQUAMOUS CELL CARCINOMA STAGE UNSPECIFIED
     Route: 048
     Dates: start: 20020612
  2. IRESSA [Suspect]
     Dosage: AS A RESULT OF HEPATIC TOXICITY GEFITINIB REDUCED TO TAKING FOR TWO WEEKS THEN TWO WEEKS OFF ETC...
     Route: 048
     Dates: end: 20040716
  3. CISPLATIN [Suspect]
     Indication: SQUAMOUS CELL CARCINOMA
     Dosage: ADMINISTERED ON DAY 1 OF CYCLE. TWO CYCLES GIVEN.
     Dates: start: 20000101
  4. MITOMYCIN [Suspect]
     Indication: SQUAMOUS CELL CARCINOMA
     Dosage: ADMINISTERED ON DAY 1 OF CYCLE. TWO CYCLES GIVEN.
     Dates: start: 20000101
  5. VINORELBINE TARTRATE [Suspect]
     Indication: SQUAMOUS CELL CARCINOMA
     Dosage: ADMINISTERED ON DAY 1 AND 8 OF CYCLE. TWO CYCLES GIVEN.
     Dates: start: 20000101
  6. VOLTAREN [Concomitant]
     Indication: CANCER PAIN
     Route: 048
     Dates: start: 20030731
  7. SELBEX [Concomitant]
     Indication: GASTRITIS
     Route: 048
     Dates: start: 20031016
  8. RADIATION THERAPY [Concomitant]
     Indication: SQUAMOUS CELL CARCINOMA
     Dosage: POST LEFT UPPER LOBECTOMY. 2 GY DAILY UP TO TOTAL DAILY DOSE OF 50 GY
     Dates: start: 20010101
  9. UFT [Concomitant]
     Dates: start: 20010101, end: 20010101

REACTIONS (4)
  - ACUTE PROMYELOCYTIC LEUKAEMIA [None]
  - HEPATOTOXICITY [None]
  - METASTASES TO BONE MARROW [None]
  - PANCYTOPENIA [None]
